FAERS Safety Report 10474766 (Version 3)
Quarter: 2014Q4

REPORT INFORMATION
  Report Type: Spontaneous
  Country: ES (occurrence: ES)
  Receive Date: 20140925
  Receipt Date: 20141111
  Transmission Date: 20150528
  Serious: Yes (Other)
  Sender: FDA-Public Use
  Company Number: ES-009507513-1409ESP006478

PATIENT
  Age: 37 Year
  Sex: Male
  Weight: 85 kg

DRUGS (5)
  1. TEMOZOLOMIDE. [Suspect]
     Active Substance: TEMOZOLOMIDE
     Indication: METASTASES TO LUNG
     Dosage: STRENGHT: 150 MG/M2, 5 DAYS EVERY 3-4 WEEKS
     Route: 048
     Dates: start: 20100915, end: 20111201
  2. MST (MORPHINE SULFATE) [Concomitant]
     Indication: ANALGESIC THERAPY
     Dosage: 30 MG, Q12H
     Dates: start: 201003, end: 201101
  3. TEMOZOLOMIDE. [Suspect]
     Active Substance: TEMOZOLOMIDE
     Indication: SYNOVIAL SARCOMA
  4. BEVACIZUMAB [Suspect]
     Active Substance: BEVACIZUMAB
     Indication: SYNOVIAL SARCOMA
     Dosage: STRENGHT: 15 MG/M2,EVERY 2 WEEKS
     Route: 065
     Dates: start: 20100628, end: 20110104
  5. IBUPROFEN. [Concomitant]
     Active Substance: IBUPROFEN
     Dosage: 600 MG, EVERY 8 HOURS
     Dates: start: 201004, end: 201102

REACTIONS (1)
  - Pneumothorax [Recovered/Resolved]
